FAERS Safety Report 10121371 (Version 1)
Quarter: 2014Q2

REPORT INFORMATION
  Report Type: Spontaneous
  Country: CN (occurrence: CN)
  Receive Date: 20140425
  Receipt Date: 20140425
  Transmission Date: 20141212
  Serious: Yes (Other)
  Sender: FDA-Public Use
  Company Number: CN-ABBVIE-14P-035-1228812-00

PATIENT
  Sex: 0

DRUGS (2)
  1. VALPROATE SODIUM/VALPROIC ACID [Suspect]
     Indication: EPILEPSY
     Dosage: EXTENDED RELEASE
     Route: 048
     Dates: start: 2012
  2. VALPROATE SODIUM/VALPROIC ACID [Suspect]
     Dosage: EXTENDED RELEASE
     Route: 048

REACTIONS (5)
  - Loss of consciousness [Unknown]
  - Epilepsy [Unknown]
  - Gait disturbance [Unknown]
  - Dysarthria [Unknown]
  - Dyskinesia [Unknown]
